FAERS Safety Report 4382363-9 (Version None)
Quarter: 2004Q2

REPORT INFORMATION
  Report Type: 
  Country: None (occurrence: None)
  Receive Date: 20040622
  Receipt Date: 20031217
  Transmission Date: 20050107
  Serious: Yes (Death, Life-Threatening)
  Sender: FDA-Public Use
  Company Number: 200314808FR

PATIENT
  Age: 66 Year
  Sex: Male

DRUGS (1)
  1. TAXOTERE [Suspect]
     Indication: PROSTATE CANCER
     Route: 042
     Dates: start: 20030915

REACTIONS (6)
  - ACUTE RESPIRATORY DISTRESS SYNDROME [None]
  - DILATATION VENTRICULAR [None]
  - EMBOLISM [None]
  - LEFT VENTRICULAR FAILURE [None]
  - PNEUMONITIS [None]
  - PULMONARY ARTERIAL PRESSURE INCREASED [None]
